FAERS Safety Report 6727357-0 (Version None)
Quarter: 2010Q2

REPORT INFORMATION
  Report Type: 
  Country: None (occurrence: None)
  Receive Date: 20100517
  Receipt Date: 20100504
  Transmission Date: 20101027
  Serious: Yes (Other)
  Sender: FDA-Public Use
  Company Number: PHHY2009CA16313

PATIENT
  Sex: Female

DRUGS (2)
  1. SANDOSTATIN LAR [Suspect]
     Indication: OVARIAN CANCER
     Dosage: 30 MG, EVERY 2 WEEKS
     Route: 030
     Dates: start: 20081230
  2. SUTENT [Concomitant]

REACTIONS (8)
  - ABDOMINAL PAIN UPPER [None]
  - ANXIETY [None]
  - BLOOD PRESSURE INCREASED [None]
  - GENERALISED OEDEMA [None]
  - HEPATIC LESION [None]
  - INJECTION SITE INDURATION [None]
  - MALIGNANT NEOPLASM PROGRESSION [None]
  - NERVOUSNESS [None]
